FAERS Safety Report 21028784 (Version 4)
Quarter: 2023Q2

REPORT INFORMATION
  Report Type: Spontaneous
  Country: US (occurrence: US)
  Receive Date: 20220630
  Receipt Date: 20230526
  Transmission Date: 20230721
  Serious: No
  Sender: FDA-Public Use
  Company Number: US-PFIZER INC-PV202200012773

PATIENT
  Age: 65 Year
  Sex: Female

DRUGS (1)
  1. IBRANCE [Suspect]
     Active Substance: PALBOCICLIB
     Dosage: 75 MG

REACTIONS (7)
  - Herpes zoster [Unknown]
  - Oral pain [Unknown]
  - Fatigue [Unknown]
  - Alopecia [Unknown]
  - Skin infection [Unknown]
  - Dry skin [Unknown]
  - Blood test abnormal [Unknown]
